FAERS Safety Report 21232788 (Version 1)
Quarter: 2022Q3

REPORT INFORMATION
  Report Type: Spontaneous
  Country: US (occurrence: US)
  Receive Date: 20220819
  Receipt Date: 20220819
  Transmission Date: 20221027
  Serious: No
  Sender: FDA-Public Use
  Company Number: US-PFIZER INC-202201065886

PATIENT
  Age: 60 Year
  Sex: Female

DRUGS (1)
  1. XELJANZ [Suspect]
     Active Substance: TOFACITINIB CITRATE
     Dosage: 5 MG, 2X/DAY (5MG BY MONTH TWICE A DAY)
     Dates: start: 20210714

REACTIONS (6)
  - Product dose omission issue [Recovered/Resolved]
  - Pain [Unknown]
  - Coronavirus infection [Unknown]
  - Headache [Unknown]
  - Neck pain [Unknown]
  - Arthralgia [Unknown]
